FAERS Safety Report 5276969-2 (Version None)
Quarter: 2007Q1

REPORT INFORMATION
  Report Type: 
  Country: None (occurrence: None)
  Receive Date: 20070327
  Receipt Date: 20061222
  Transmission Date: 20070707
  Serious: No
  Sender: FDA-Public Use
  Company Number: US-BRISTOL-MYERS SQUIBB COMPANY-13576897

PATIENT
  Age: 66 Year
  Sex: Female

DRUGS (8)
  1. ORENCIA [Suspect]
     Indication: RHEUMATOID ARTHRITIS
     Dosage: DOSAGE FORM= CC'S
     Route: 042
     Dates: end: 20061109
  2. ADVIL [Concomitant]
  3. FOSAMAX [Concomitant]
  4. TYLENOL W/ CODEINE [Concomitant]
  5. SPIRONOLACTONE [Concomitant]
  6. PREDNISONE [Concomitant]
  7. ZANTAC [Concomitant]
  8. ASPIRIN [Concomitant]

REACTIONS (2)
  - BACK PAIN [None]
  - HYPOAESTHESIA [None]
